FAERS Safety Report 9520844 (Version 1)
Quarter: 2013Q1

REPORT INFORMATION
  Report Type: Spontaneous
  Country: US (occurrence: None)
  Receive Date: 20130305
  Receipt Date: 20130305
  Transmission Date: 20140127
  Serious: Yes (Other)
  Sender: FDA-Public Use
  Company Number: 163-21880-09060867

PATIENT
  Age: 72 Year
  Sex: Female
  Weight: 78.02 kg

DRUGS (7)
  1. REVLIMID [Suspect]
     Indication: PLASMA CELL MYELOMA
     Dosage: 21 IN 28 D
     Route: 048
     Dates: start: 20070115
  2. ASA (ACETYLSALICYLIC ACID) [Concomitant]
  3. CORAL CALCIUM(OS-CAL) [Concomitant]
  4. LASIX (FUROSEMIDE) [Concomitant]
  5. NEURONTIN (GABAPENTIN) [Concomitant]
  6. OMEPRAZOLE (OMEPRAZOLE) [Concomitant]
  7. VITAMIN B6 (PYRIDOXINE HYDROCHLORIDE) [Concomitant]

REACTIONS (2)
  - Tremor [None]
  - Feeling jittery [None]
